FAERS Safety Report 11876018 (Version 1)
Quarter: 2015Q4

REPORT INFORMATION
  Report Type: Spontaneous
  Country: GB (occurrence: GB)
  Receive Date: 20151229
  Receipt Date: 20151229
  Transmission Date: 20160305
  Serious: Yes (Hospitalization, Other)
  Sender: FDA-Public Use
  Company Number: GB-TAKEDA-2015MPI008704

PATIENT

DRUGS (11)
  1. VELCADE [Suspect]
     Active Substance: BORTEZOMIB
     Indication: PLASMA CELL MYELOMA
     Dosage: 1.3 MG/M2, 1/WEEK
     Route: 042
     Dates: start: 20150619
  2. BISOPROLOL [Concomitant]
     Active Substance: BISOPROLOL
     Indication: ATRIAL FIBRILLATION
     Dosage: UNK
     Route: 065
  3. CARBOMER [Concomitant]
     Active Substance: CARBOMER
     Dosage: UNK
     Route: 065
  4. VELCADE [Suspect]
     Active Substance: BORTEZOMIB
     Dosage: 1 MG/M2, 1/WEEK
     Route: 042
     Dates: end: 20151113
  5. AMLODIPINE [Concomitant]
     Active Substance: AMLODIPINE BESYLATE
     Dosage: UNK
     Route: 065
  6. GABAPENTIN. [Concomitant]
     Active Substance: GABAPENTIN
     Dosage: UNK
     Route: 065
  7. ADCAL D3 [Concomitant]
     Active Substance: CALCIUM CARBONATE\CHOLECALCIFEROL
     Dosage: UNK, QD
     Route: 048
  8. FUROSEMIDE. [Concomitant]
     Active Substance: FUROSEMIDE
     Dosage: UNK, QD
     Route: 065
  9. HYPROMELLOSE [Concomitant]
     Active Substance: HYPROMELLOSES
     Dosage: UNK
     Route: 065
  10. WARFARIN [Concomitant]
     Active Substance: WARFARIN
     Indication: ATRIAL FIBRILLATION
     Dosage: UNK
     Route: 065
  11. LANSOPRAZOLE. [Concomitant]
     Active Substance: LANSOPRAZOLE
     Dosage: UNK, QD
     Route: 065

REACTIONS (10)
  - Altered visual depth perception [Unknown]
  - Muscle twitching [Unknown]
  - Muscular weakness [Unknown]
  - Dizziness [Unknown]
  - Visual acuity reduced [Unknown]
  - Encephalopathy [Not Recovered/Not Resolved]
  - Confusional state [Unknown]
  - Infarction [Unknown]
  - Coordination abnormal [Unknown]
  - Neuropathy peripheral [Unknown]

NARRATIVE: CASE EVENT DATE: 20150619
